FAERS Safety Report 6304698-2 (Version None)
Quarter: 2009Q3

REPORT INFORMATION
  Report Type: 
  Country: None (occurrence: None)
  Receive Date: 20090811
  Receipt Date: 20090804
  Transmission Date: 20100115
  Serious: Yes (Life-Threatening, Hospitalization, Other)
  Sender: FDA-Public Use
  Company Number: A0771198A

PATIENT
  Age: 56 Year
  Sex: Female
  Weight: 51.8 kg

DRUGS (13)
  1. IMITREX [Suspect]
     Indication: MIGRAINE
     Dosage: 25MG VARIABLE DOSE
     Route: 048
     Dates: end: 20060101
  2. HYDROCHLOROTHIAZIDE [Concomitant]
     Dosage: 25MG PER DAY
     Route: 048
  3. SYNTHROID [Concomitant]
     Dosage: 25MCG PER DAY
     Route: 048
  4. FOSAMAX [Concomitant]
     Route: 048
  5. PROCARDIA XL [Concomitant]
     Dosage: 30MG PER DAY
  6. PREMARIN [Concomitant]
  7. COMBIPATCH [Concomitant]
     Route: 061
  8. VITAMIN D [Concomitant]
     Route: 048
  9. ACCUPRIL [Concomitant]
     Dosage: 40MG PER DAY
     Route: 048
  10. M.V.I. [Concomitant]
     Dosage: 1TAB PER DAY
     Route: 048
  11. SOY [Concomitant]
     Dosage: 4TAB THREE TIMES PER DAY
     Route: 048
  12. VITAMIN E [Concomitant]
     Dosage: 1TAB PER DAY
     Route: 048
  13. MAGNESIUM [Concomitant]
     Dosage: 300MG PER DAY
     Route: 048

REACTIONS (10)
  - ACUTE CORONARY SYNDROME [None]
  - ACUTE MYOCARDIAL INFARCTION [None]
  - ARTERIOSCLEROSIS CORONARY ARTERY [None]
  - ARTERIOSPASM CORONARY [None]
  - CARDIAC ENZYMES INCREASED [None]
  - CHEST DISCOMFORT [None]
  - CORONARY ARTERY DISEASE [None]
  - CORONARY ARTERY STENOSIS [None]
  - ELECTROCARDIOGRAM CHANGE [None]
  - HEPATIC ENZYME ABNORMAL [None]
